FAERS Safety Report 10175894 (Version 1)
Quarter: 2014Q2

REPORT INFORMATION
  Report Type: Spontaneous
  Country: FR (occurrence: FR)
  Receive Date: 20140516
  Receipt Date: 20140516
  Transmission Date: 20141212
  Serious: Yes (Life-Threatening)
  Sender: FDA-Public Use
  Company Number: FR-ASTRAZENECA-2014SE33171

PATIENT
  Age: 47 Year
  Sex: Male

DRUGS (4)
  1. HYTACAND [Suspect]
     Indication: HYPERTENSION
     Dosage: 8/12.5 MG/DAY
     Route: 048
     Dates: start: 2004
  2. TEGRETOL [Suspect]
     Indication: EPILEPSY
     Route: 048
     Dates: start: 1999, end: 201312
  3. KARDEGIC [Suspect]
     Route: 048
     Dates: start: 2004
  4. KEPPRA [Concomitant]
     Route: 048
     Dates: start: 201312

REACTIONS (1)
  - Emphysema [Not Recovered/Not Resolved]
